FAERS Safety Report 8174556-X (Version None)
Quarter: 2012Q1

REPORT INFORMATION
  Report Type: 
  Country: None (occurrence: None)
  Receive Date: 20120229
  Receipt Date: 20120223
  Transmission Date: 20120608
  Serious: Yes (Hospitalization, Other)
  Sender: FDA-Public Use
  Company Number: US-PFIZER INC-2012049543

PATIENT
  Sex: Female

DRUGS (1)
  1. CHANTIX [Suspect]
     Dosage: UNK
     Dates: start: 20090201

REACTIONS (8)
  - DEPRESSION [None]
  - ABNORMAL BEHAVIOUR [None]
  - AGGRESSION [None]
  - IRRITABILITY [None]
  - ANXIETY [None]
  - PARANOIA [None]
  - SUICIDE ATTEMPT [None]
  - MOOD SWINGS [None]
